FAERS Safety Report 15731150 (Version 2)
Quarter: 2020Q2

REPORT INFORMATION
  Report Type: Report from Study
  Country: US (occurrence: US)
  Receive Date: 20181217
  Receipt Date: 20200423
  Transmission Date: 20200713
  Serious: Yes (Hospitalization, Other)
  Sender: FDA-Public Use
  Company Number: US-BRISTOL-MYERS SQUIBB COMPANY-BMS-2018-116978

PATIENT
  Age: 61 Year
  Sex: Male
  Weight: 85.26 kg

DRUGS (3)
  1. NIVOLUMAB [Suspect]
     Active Substance: NIVOLUMAB
     Indication: ANGIOSARCOMA
     Dosage: 3 MG/KG, UNK
     Route: 042
     Dates: start: 20181126
  2. IPILIMUMAB [Suspect]
     Active Substance: IPILIMUMAB
     Indication: ANGIOSARCOMA
     Dosage: 1 MG/KG, UNK
     Route: 042
     Dates: start: 20181126
  3. TRABECTEDIN [Suspect]
     Active Substance: TRABECTEDIN
     Indication: ANGIOSARCOMA
     Dosage: 1.2 G/M2, UNK
     Route: 042
     Dates: start: 20181108

REACTIONS (4)
  - Pyrexia [Unknown]
  - Pseudomonal bacteraemia [Recovered/Resolved]
  - Chills [Unknown]
  - Dyspnoea [Unknown]

NARRATIVE: CASE EVENT DATE: 20181206
